FAERS Safety Report 12138993 (Version 4)
Quarter: 2016Q2

REPORT INFORMATION
  Report Type: Spontaneous
  Country: US (occurrence: US)
  Receive Date: 20160302
  Receipt Date: 20160505
  Transmission Date: 20160815
  Serious: Yes (Hospitalization, Other)
  Sender: FDA-Public Use
  Company Number: US-009507513-1603USA000377

PATIENT
  Age: 56 Year
  Sex: Male
  Weight: 107.48 kg

DRUGS (12)
  1. PROBIOTICS (UNSPECIFIED) [Concomitant]
     Active Substance: PROBIOTICS NOS
  2. CYCLOBENZAPRINE HYDROCHLORIDE. [Concomitant]
     Active Substance: CYCLOBENZAPRINE HYDROCHLORIDE
  3. FUROSEMIDE. [Concomitant]
     Active Substance: FUROSEMIDE
     Dosage: UNK
     Dates: start: 20110830
  4. VANCOMYCIN [Concomitant]
     Active Substance: VANCOMYCIN
  5. MUPIROCIN. [Concomitant]
     Active Substance: MUPIROCIN
  6. ATORVASTATIN [Concomitant]
     Active Substance: ATORVASTATIN
  7. LANTUS [Concomitant]
     Active Substance: INSULIN GLARGINE
  8. AMMONIUM LACTATE. [Concomitant]
     Active Substance: AMMONIUM LACTATE
  9. JANUVIA [Suspect]
     Active Substance: SITAGLIPTIN PHOSPHATE
     Dosage: UNK
     Route: 048
     Dates: start: 20130312, end: 20160222
  10. HUMALOG [Concomitant]
     Active Substance: INSULIN LISPRO
  11. METRONIDAZOLE. [Concomitant]
     Active Substance: METRONIDAZOLE
     Dosage: UNK
     Dates: start: 20150602
  12. ASPIRIN. [Concomitant]
     Active Substance: ASPIRIN

REACTIONS (33)
  - Urinary tract infection bacterial [Unknown]
  - Gastrooesophageal reflux disease [Unknown]
  - Chronic obstructive pulmonary disease [Unknown]
  - Back pain [Unknown]
  - Obesity [Unknown]
  - Blood thyroid stimulating hormone abnormal [Unknown]
  - Hypertensive heart disease [Unknown]
  - Cerumen impaction [Unknown]
  - Rash [Unknown]
  - Colon cancer [Unknown]
  - Sepsis [Unknown]
  - Osteomyelitis [Unknown]
  - Nail injury [Unknown]
  - Dyspnoea [Unknown]
  - Cellulitis [Unknown]
  - Hyperlipidaemia [Unknown]
  - Arthralgia [Unknown]
  - Peripheral vascular disorder [Unknown]
  - Joint stiffness [Unknown]
  - Deep vein thrombosis [Unknown]
  - Anaemia of chronic disease [Unknown]
  - Muscle spasms [Unknown]
  - Hypertriglyceridaemia [Unknown]
  - Toe amputation [Unknown]
  - Diarrhoea [Unknown]
  - Pancreatitis [Recovered/Resolved]
  - Clostridium difficile colitis [Unknown]
  - Diabetic ulcer [Unknown]
  - Diabetic foot [Unknown]
  - Bronchitis [Unknown]
  - Sleep apnoea syndrome [Unknown]
  - Fall [Unknown]
  - Oedema [Unknown]

NARRATIVE: CASE EVENT DATE: 20160117
